FAERS Safety Report 8724881 (Version 2)
Quarter: 2015Q2

REPORT INFORMATION
  Report Type: Report from Study
  Country: US (occurrence: US)
  Receive Date: 20120815
  Receipt Date: 20150407
  Transmission Date: 20150821
  Serious: Yes (Hospitalization, Other)
  Sender: FDA-Public Use
  Company Number: US-ROCHE-1100579

PATIENT
  Sex: Male

DRUGS (10)
  1. NITROGLYCERINE [Concomitant]
     Active Substance: NITROGLYCERIN
     Dosage: TWO
     Route: 060
  2. MORPHINE [Concomitant]
     Active Substance: MORPHINE
     Route: 065
  3. PRONESTYL [Concomitant]
     Active Substance: PROCAINAMIDE HYDROCHLORIDE
     Route: 042
  4. NITROGLYCERINE [Concomitant]
     Active Substance: NITROGLYCERIN
     Dosage: THREE
     Route: 060
  5. ACTIVASE [Suspect]
     Active Substance: ALTEPLASE
     Indication: MYOCARDIAL INFARCTION
     Route: 042
  6. MORPHINE [Concomitant]
     Active Substance: MORPHINE
     Route: 065
  7. LIDOCAINE. [Concomitant]
     Active Substance: LIDOCAINE
     Dosage: 150MG
     Route: 040
  8. MAGNESIUM SULFATE. [Concomitant]
     Active Substance: MAGNESIUM SULFATE
     Route: 040
  9. MAGNESIUM SULFATE. [Concomitant]
     Active Substance: MAGNESIUM SULFATE
     Route: 041
  10. LIDOCAINE. [Concomitant]
     Active Substance: LIDOCAINE
     Route: 041

REACTIONS (4)
  - Bradycardia [Unknown]
  - Ventricular extrasystoles [Unknown]
  - Chest pain [Unknown]
  - Tachycardia [Unknown]
